FAERS Safety Report 10266006 (Version 2)
Quarter: 2014Q2

REPORT INFORMATION
  Report Type: Report from Study
  Country: US (occurrence: US)
  Receive Date: 20140627
  Receipt Date: 20140627
  Transmission Date: 20141212
  Serious: Yes (Hospitalization, Other)
  Sender: FDA-Public Use
  Company Number: US-SANOFI-AVENTIS-2013SA087997

PATIENT
  Age: 34 Year
  Sex: Male

DRUGS (1)
  1. AUBAGIO [Suspect]
     Indication: MULTIPLE SCLEROSIS
     Route: 048
     Dates: start: 20130310

REACTIONS (5)
  - Polyp [Recovered/Resolved]
  - Faeces discoloured [Unknown]
  - Vomiting [Unknown]
  - Herpes simplex [Unknown]
  - Adverse event [Not Recovered/Not Resolved]
